FAERS Safety Report 12641143 (Version 2)
Quarter: 2016Q3

REPORT INFORMATION
  Report Type: Spontaneous
  Country: US (occurrence: US)
  Receive Date: 20160810
  Receipt Date: 20160829
  Transmission Date: 20161109
  Serious: Yes (Congenital Anomaly, Other)
  Sender: FDA-Public Use
  Company Number: PHHY2015US126551

PATIENT
  Sex: Male

DRUGS (1)
  1. ZOFRAN [Suspect]
     Active Substance: ONDANSETRON HYDROCHLORIDE
     Indication: FOETAL EXPOSURE DURING PREGNANCY
     Dosage: UNK
     Route: 064

REACTIONS (11)
  - Heart disease congenital [Unknown]
  - Congenital renal disorder [Unknown]
  - Congenital inguinal hernia [Unknown]
  - Injury [Unknown]
  - Scar [Unknown]
  - Foetal exposure during pregnancy [Unknown]
  - Hypoplastic left heart syndrome [Unknown]
  - Cytogenetic abnormality [Unknown]
  - Apnoea [Unknown]
  - Renal failure [Unknown]
  - Congenital anomaly [Unknown]
